FAERS Safety Report 9699355 (Version 2)
Quarter: 2013Q4

REPORT INFORMATION
  Report Type: Report from Study
  Country: CA (occurrence: CA)
  Receive Date: 20131120
  Receipt Date: 20131120
  Transmission Date: 20140711
  Serious: Yes (Other)
  Sender: FDA-Public Use
  Company Number: CA-ABBVIE-09P-028-0607468-00

PATIENT
  Age: 40 Year
  Sex: Male
  Weight: 74.91 kg

DRUGS (18)
  1. HUMIRA 40 MG/0.8 ML PEN [Suspect]
     Indication: ANKYLOSING SPONDYLITIS
     Route: 058
     Dates: end: 20131110
  2. RAMIPRIL [Concomitant]
     Indication: HYPERTENSION
     Dosage: 10MG QD
  3. GLICLAZIDE [Concomitant]
     Indication: DIABETES MELLITUS
     Dosage: 80MG 2 TABS BID
  4. CARVEDILOL [Concomitant]
     Indication: CARDIAC FAILURE CONGESTIVE
     Dosage: 25MG 2 TABS BID
  5. FUROSEMIDE [Concomitant]
     Indication: PRODUCT USED FOR UNKNOWN INDICATION
     Dosage: 40MG 3 TABS BID
  6. RABEPRAZOLE [Concomitant]
     Indication: PRODUCT USED FOR UNKNOWN INDICATION
     Dosage: 20MG QD 30 MINUTE BEFORE MEALS
  7. NORVASC [Concomitant]
     Indication: PRODUCT USED FOR UNKNOWN INDICATION
     Dosage: 10MG 1 TAB QD
  8. LIPITOR [Concomitant]
     Indication: PRODUCT USED FOR UNKNOWN INDICATION
     Dosage: 10MG 1 TAB QD
  9. ACTONEL [Concomitant]
     Indication: PRODUCT USED FOR UNKNOWN INDICATION
     Dosage: 35MG Q WEEKLY
  10. ASPIRIN [Concomitant]
     Indication: PRODUCT USED FOR UNKNOWN INDICATION
     Dosage: 80MG QD
  11. TYLENOL W/CODEINE NO. 3 [Concomitant]
     Indication: PRODUCT USED FOR UNKNOWN INDICATION
  12. AMLODIPINE [Concomitant]
     Indication: HYPERTENSION
  13. SANDOZ ATORVASTATIN [Concomitant]
     Indication: BLOOD CHOLESTEROL INCREASED
  14. TECTA [Concomitant]
     Indication: GASTROINTESTINAL DISORDER
  15. TECTA [Concomitant]
     Indication: PROPHYLAXIS
  16. JANUVIA [Concomitant]
     Indication: DIABETES MELLITUS
  17. TEVA TELMISARTRAN [Concomitant]
     Indication: HYPERTENSION
  18. TEVA RISEDRONEATE [Concomitant]
     Indication: MINERAL SUPPLEMENTATION
     Dosage: 35 MG WEEKLY

REACTIONS (4)
  - Benign lymph node neoplasm [Unknown]
  - Fluid retention [Unknown]
  - Pituitary-dependent Cushing^s syndrome [Not Recovered/Not Resolved]
  - Iritis [Not Recovered/Not Resolved]
